FAERS Safety Report 5930812-4 (Version None)
Quarter: 2008Q4

REPORT INFORMATION
  Report Type: 
  Country: None (occurrence: None)
  Receive Date: 20081022
  Receipt Date: 20081008
  Transmission Date: 20090506
  Serious: Yes (Hospitalization)
  Sender: FDA-Public Use
  Company Number: 1000001400

PATIENT
  Age: 81 Year
  Sex: Male

DRUGS (4)
  1. CITALOPRAM HYDROBROMIDE [Suspect]
     Dosage: 10 MG (10 MG, 1 IN 1 D), ORAL
     Route: 048
     Dates: start: 20060601
  2. KARDEGIC (75 MILLIGRAM, POWDER) [Suspect]
     Dosage: 75 MG (75 MG, 1 IN 1 D), ORAL
     Route: 048
     Dates: start: 20060101
  3. DURAGESIC-100 [Concomitant]
  4. NOVASOURCE GI CONTROL [Concomitant]

REACTIONS (5)
  - DIVERTICULUM INTESTINAL [None]
  - IRON DEFICIENCY ANAEMIA [None]
  - LARGE INTESTINAL HAEMORRHAGE [None]
  - OESOPHAGITIS ULCERATIVE [None]
  - UPPER GASTROINTESTINAL HAEMORRHAGE [None]
